FAERS Safety Report 9214484 (Version 2)
Quarter: 2013Q2

REPORT INFORMATION
  Report Type: Report from Study
  Country: AU (occurrence: AU)
  Receive Date: 20130405
  Receipt Date: 20130613
  Transmission Date: 20140414
  Serious: Yes (Other)
  Sender: FDA-Public Use
  Company Number: AU-CELGENEUS-008-C5013-11122404

PATIENT
  Age: 72 Year
  Sex: Female
  Weight: 99 kg

DRUGS (12)
  1. THALIDOMIDE [Suspect]
     Indication: PLASMA CELL MYELOMA
     Dosage: 200 MILLIGRAM
     Route: 048
     Dates: start: 20091211
  2. THALIDOMIDE [Suspect]
     Route: 048
     Dates: end: 20110317
  3. PREDNISONE [Suspect]
     Indication: PLASMA CELL MYELOMA
     Dosage: 100 MILLIGRAM
     Route: 048
     Dates: start: 20091211
  4. PREDNISONE [Suspect]
     Route: 048
     Dates: end: 20110317
  5. MELPHALAN [Suspect]
     Indication: PLASMA CELL MYELOMA
     Dosage: 24 MILLIGRAM
     Route: 048
     Dates: start: 20091211
  6. MELPHALAN [Suspect]
     Route: 048
     Dates: end: 20110317
  7. FISH OIL [Concomitant]
     Indication: ARTHRITIS
     Dosage: 2400 MILLIGRAM
     Route: 048
     Dates: start: 2006
  8. DISODIUM PAMIDRONATE [Concomitant]
     Indication: BONE DISORDER
     Route: 041
     Dates: start: 20091130
  9. MEGG B HIGH POTENCY [Concomitant]
     Indication: VITAMIN SUPPLEMENTATION
     Dosage: 1 GRAM
     Route: 048
     Dates: start: 20100106
  10. DESTRIN VITAMIN D [Concomitant]
     Indication: OSTEOLYSIS
     Route: 048
     Dates: start: 20100528
  11. RAMIPRIL [Concomitant]
     Indication: HYPERTENSION
     Dosage: 10 MILLIGRAM
     Route: 048
     Dates: start: 20100807
  12. ONDANSETRON [Concomitant]
     Indication: ACUTE MYELOID LEUKAEMIA
     Dosage: 4 MILLIGRAM
     Route: 065
     Dates: start: 20121008, end: 20121016

REACTIONS (1)
  - Acute myeloid leukaemia [Not Recovered/Not Resolved]
